FAERS Safety Report 13267313 (Version 1)
Quarter: 2017Q1

REPORT INFORMATION
  Report Type: Spontaneous
  Country: US (occurrence: US)
  Receive Date: 20170223
  Receipt Date: 20170223
  Transmission Date: 20170428
  Serious: No
  Sender: FDA-Public Use
  Company Number: None

PATIENT
  Age: 19 Year
  Sex: Female
  Weight: 53.52 kg

DRUGS (11)
  1. MEDROXYPROGESTERONE [Suspect]
     Active Substance: MEDROXYPROGESTERONE
     Indication: MENSTRUATION IRREGULAR
     Dosage: FREQUENCY - EVERY 3 MONTHS
     Route: 028
     Dates: start: 20161012
  2. PROAIR INHALER [Concomitant]
  3. VITAMIN D3 [Concomitant]
     Active Substance: CHOLECALCIFEROL
  4. SINGULAIR [Concomitant]
     Active Substance: MONTELUKAST SODIUM
  5. MEDROXYPROGESTERONE [Suspect]
     Active Substance: MEDROXYPROGESTERONE
     Indication: POLYMENORRHOEA
     Dosage: FREQUENCY - EVERY 3 MONTHS
     Route: 028
     Dates: start: 20161012
  6. CONCERTA [Concomitant]
     Active Substance: METHYLPHENIDATE HYDROCHLORIDE
  7. FLONASE [Concomitant]
     Active Substance: FLUTICASONE PROPIONATE
  8. MEDROXYPROGESTERONE [Concomitant]
     Active Substance: MEDROXYPROGESTERONE
  9. MEDROXYPROGESTERONE [Suspect]
     Active Substance: MEDROXYPROGESTERONE
     Indication: MENORRHAGIA
     Dosage: FREQUENCY - EVERY 3 MONTHS
     Route: 028
     Dates: start: 20161012
  10. LORATADINE. [Concomitant]
     Active Substance: LORATADINE
  11. MULTIVITAMIN W/IRON [Concomitant]

REACTIONS (1)
  - Drug ineffective [None]
